FAERS Safety Report 6930095-2 (Version None)
Quarter: 2010Q3

REPORT INFORMATION
  Report Type: 
  Country: None (occurrence: None)
  Receive Date: 20100817
  Receipt Date: 20100817
  Transmission Date: 20110219
  Serious: No
  Sender: FDA-Public Use
  Company Number: None

PATIENT
  Age: 63 Year
  Sex: Male
  Weight: 94.3482 kg

DRUGS (1)
  1. LANTUS [Suspect]
     Dosage: 40 UNITS NIGHTLY

REACTIONS (5)
  - CHILLS [None]
  - PRURITUS [None]
  - SINUS HEADACHE [None]
  - SOMNOLENCE [None]
  - SWOLLEN TONGUE [None]
